FAERS Safety Report 14060582 (Version 1)
Quarter: 2017Q4

REPORT INFORMATION
  Report Type: Report from Study
  Country: DE (occurrence: DE)
  Receive Date: 20171007
  Receipt Date: 20171007
  Transmission Date: 20180321
  Serious: Yes (Other)
  Sender: FDA-Public Use
  Company Number: DE-ROCHE-2004393

PATIENT

DRUGS (16)
  1. METHYLPREDNISOLONE. [Suspect]
     Active Substance: METHYLPREDNISOLONE
     Indication: IMMUNOSUPPRESSION
     Dosage: PRE TRANSPLANT, APPROXIMATELY 2 H PRIOR TO SKIN INCISION
     Route: 042
  2. METHYLPREDNISOLONE. [Suspect]
     Active Substance: METHYLPREDNISOLONE
     Dosage: INTRAOPERATIVELY AFTER EACH PULMONARY ARTERY (PA) RELEASE
     Route: 042
  3. FLUCONAZOLE. [Concomitant]
     Active Substance: FLUCONAZOLE
     Route: 048
  4. PREDNISOLONE. [Suspect]
     Active Substance: PREDNISOLONE
     Indication: IMMUNOSUPPRESSION
     Dosage: DAY 1, DIVIDED IN TWO DOSES PER DAY
     Route: 048
  5. IVIG [Suspect]
     Active Substance: HUMAN IMMUNOGLOBULIN G
     Indication: IMMUNOSUPPRESSION
     Dosage: 50 MG/ML
     Route: 042
  6. MYCOPHENOLATE MOFETIL. [Suspect]
     Active Substance: MYCOPHENOLATE MOFETIL
     Dosage: IN WEEK 1 POST TRANSPLANT
     Route: 048
  7. TACROLIMUS. [Suspect]
     Active Substance: TACROLIMUS
     Indication: IMMUNOSUPPRESSION
     Dosage: APPROXIMATELY 2 H PRIOR TO SKIN INCISION
     Route: 048
  8. CYCLOSPORINE A [Suspect]
     Active Substance: CYCLOSPORINE
     Indication: IMMUNOSUPPRESSION
     Route: 065
  9. MYCOPHENOLATE MOFETIL. [Suspect]
     Active Substance: MYCOPHENOLATE MOFETIL
     Dosage: 2-3 G DAY^-1 IN TWO DIVIDED DOSES IN WEEK 2- MONTH 12 AND AFTER 12 MONTHS POST TRANSPLANT
     Route: 048
  10. TACROLIMUS. [Suspect]
     Active Substance: TACROLIMUS
     Route: 050
  11. PREDNISOLONE. [Suspect]
     Active Substance: PREDNISOLONE
     Dosage: SINGLE MORNING DOSE FOLLOWING FIRST WEEK AFTER TX.
     Route: 048
  12. PREDNISOLONE. [Suspect]
     Active Substance: PREDNISOLONE
     Dosage: 10-15 MG SINGLE-DAY MAINTAINANCE DOSE
     Route: 048
  13. ACYCLOVIR. [Concomitant]
     Active Substance: ACYCLOVIR
     Indication: ANTIVIRAL PROPHYLAXIS
     Route: 048
  14. COTRIMOXAZOLE [Concomitant]
     Active Substance: SULFAMETHOXAZOLE\TRIMETHOPRIM
     Indication: PROPHYLAXIS
     Dosage: DOUBLE-STRENGTH
     Route: 048
  15. MYCOPHENOLATE MOFETIL. [Suspect]
     Active Substance: MYCOPHENOLATE MOFETIL
     Indication: IMMUNOSUPPRESSION
     Dosage: APPROXIMATELY 2 H PRIOR TO SKIN INCISION
     Route: 048
  16. METHYLPREDNISOLONE. [Suspect]
     Active Substance: METHYLPREDNISOLONE
     Route: 042

REACTIONS (4)
  - Obliterative bronchiolitis [Unknown]
  - Aspergillus infection [Unknown]
  - Viral infection [Unknown]
  - Bacterial infection [Unknown]
